FAERS Safety Report 11681152 (Version 2)
Quarter: 2015Q4

REPORT INFORMATION
  Report Type: Spontaneous
  Country: US (occurrence: US)
  Receive Date: 20151027
  Receipt Date: 20151104
  Transmission Date: 20160304
  Serious: No
  Sender: FDA-Public Use
  Company Number: US-ELI_LILLY_AND_COMPANY-US201010007274

PATIENT
  Age: 75 Year
  Sex: Female

DRUGS (3)
  1. MUCINEX [Concomitant]
     Active Substance: GUAIFENESIN
  2. FORTEO [Suspect]
     Active Substance: TERIPARATIDE
     Indication: OSTEOPOROSIS
     Dosage: UNK, UNKNOWN
     Dates: start: 20101022
  3. ANTIBIOTICS [Concomitant]
     Active Substance: UNSPECIFIED INGREDIENT
     Indication: SINUSITIS

REACTIONS (2)
  - Sinusitis [Unknown]
  - Injection site pain [Unknown]
